FAERS Safety Report 10700994 (Version 2)
Quarter: 2015Q1

REPORT INFORMATION
  Report Type: Spontaneous
  Country: US (occurrence: US)
  Receive Date: 20150109
  Receipt Date: 20150130
  Transmission Date: 20150721
  Serious: Yes (Other)
  Sender: FDA-Public Use
  Company Number: US-PFIZER INC-2015006267

PATIENT
  Age: 62 Year
  Sex: Female
  Weight: 91 kg

DRUGS (3)
  1. VITAMIN D [Concomitant]
     Active Substance: CHOLECALCIFEROL
     Dosage: 50000 IU, UNK
     Route: 048
  2. AROMASIN [Suspect]
     Active Substance: EXEMESTANE
     Indication: BREAST CANCER
     Dosage: 25 MG, DAILY
     Dates: start: 2013, end: 20141224
  3. ALEVE [Concomitant]
     Active Substance: NAPROXEN SODIUM
     Dosage: UNK, AS NEEDED

REACTIONS (4)
  - Arthropathy [Recovering/Resolving]
  - Vitamin D abnormal [Unknown]
  - Gait disturbance [Recovering/Resolving]
  - Sciatica [Unknown]

NARRATIVE: CASE EVENT DATE: 201410
